FAERS Safety Report 14235889 (Version 2)
Quarter: 2018Q1

REPORT INFORMATION
  Report Type: Report from Study
  Country: JP (occurrence: JP)
  Receive Date: 20171129
  Receipt Date: 20180102
  Transmission Date: 20180508
  Serious: Yes (Other)
  Sender: FDA-Public Use
  Company Number: JP-BAUSCH-BL-2017-016588

PATIENT
  Age: 62 Year
  Sex: Male

DRUGS (23)
  1. PIARLE [Concomitant]
     Indication: HYPERAMMONAEMIA
     Route: 048
     Dates: start: 20160915, end: 20170404
  2. AMINOLEBAN EN [Concomitant]
     Active Substance: UNSPECIFIED INGREDIENT
     Indication: HYPERAMMONAEMIA
     Route: 048
     Dates: start: 20160921
  3. LASIX [Concomitant]
     Active Substance: FUROSEMIDE
     Indication: ASCITES
     Route: 048
     Dates: start: 20160920, end: 20170221
  4. LASIX [Concomitant]
     Active Substance: FUROSEMIDE
     Route: 048
     Dates: start: 20170222
  5. ALDACTONE A [Concomitant]
     Active Substance: SPIRONOLACTONE
     Indication: ASCITES
     Route: 048
     Dates: start: 20160929
  6. ALDACTONE A [Concomitant]
     Active Substance: SPIRONOLACTONE
     Indication: PLEURAL EFFUSION
  7. TSUMURA HOCHUEKKITO EXTRACT GRANULES FOR ETHICAL USE [Concomitant]
     Indication: ASTHENIA
     Route: 048
     Dates: start: 20170920
  8. RIFXIMA TABLETS 200 MG [Suspect]
     Active Substance: RIFAXIMIN
     Indication: HYPERAMMONAEMIA
     Route: 048
     Dates: start: 20161228
  9. NEXIUM [Concomitant]
     Active Substance: ESOMEPRAZOLE MAGNESIUM
     Indication: GASTROOESOPHAGEAL REFLUX DISEASE
     Route: 048
     Dates: start: 20160915
  10. DIART [Concomitant]
     Active Substance: AZOSEMIDE
     Indication: ASCITES
     Route: 048
     Dates: start: 20160920
  11. SAMSCA [Concomitant]
     Active Substance: TOLVAPTAN
     Indication: ASCITES
     Route: 048
     Dates: start: 20160915
  12. SAMSCA [Concomitant]
     Active Substance: TOLVAPTAN
     Indication: PLEURAL EFFUSION
  13. FERROMIA [Concomitant]
     Active Substance: SODIUM FERROUS CITRATE
     Indication: IRON DEFICIENCY ANAEMIA
     Route: 048
     Dates: start: 20160916
  14. CARBOCISTEINE [Concomitant]
     Active Substance: CARBOCYSTEINE
     Indication: COUGH
     Route: 048
     Dates: start: 20161130, end: 20170207
  15. LUNESTA [Concomitant]
     Active Substance: ESZOPICLONE
     Indication: INSOMNIA
     Route: 048
     Dates: start: 20160915
  16. MEDICON [Concomitant]
     Active Substance: DEXTROMETHORPHAN HYDROBROMIDE
     Indication: COUGH
     Route: 048
     Dates: start: 20161004, end: 20170207
  17. BIO-THREE [Concomitant]
     Active Substance: HERBALS
     Indication: ENTEROCOLITIS
     Route: 048
     Dates: start: 20160915
  18. DOGMATYL [Concomitant]
     Active Substance: SULPIRIDE
     Indication: GASTRIC ULCER
     Route: 048
     Dates: start: 20160921, end: 20170404
  19. FEBURIC [Concomitant]
     Active Substance: FEBUXOSTAT
     Indication: HYPERURICAEMIA
     Route: 048
     Dates: start: 20170111
  20. L-CARTIN FF [Concomitant]
     Active Substance: LEVOCARNITINE
     Indication: HYPERAMMONAEMIA
     Route: 048
     Dates: start: 20160915
  21. PROMAC [Concomitant]
     Active Substance: NITROFURANTOIN
     Indication: GASTRIC ULCER
     Route: 048
     Dates: start: 20160921
  22. ATARAX-P [Concomitant]
     Active Substance: HYDROXYZINE HYDROCHLORIDE
     Indication: PRURITUS
     Route: 048
     Dates: start: 20161116
  23. CALONAL [Concomitant]
     Active Substance: ACETAMINOPHEN
     Indication: PAIN
     Route: 048
     Dates: start: 20170220, end: 20170223

REACTIONS (4)
  - Clostridium difficile colitis [Recovered/Resolved]
  - Pseudomembranous colitis [Recovered/Resolved]
  - Pain [Recovered/Resolved]
  - Hyperuricaemia [Recovering/Resolving]

NARRATIVE: CASE EVENT DATE: 20170111
